FAERS Safety Report 8960637 (Version 1)
Quarter: 2012Q4

REPORT INFORMATION
  Report Type: 
  Country: US (occurrence: US)
  Receive Date: 20121212
  Receipt Date: 20121212
  Transmission Date: 20130627
  Serious: Yes (Death, Life-Threatening, Hospitalization, Other)
  Sender: FDA-Public Use
  Company Number: US-ROXANE LABORATORIES, INC.-2012-BI-00604GD

PATIENT
  Age: 59 Year
  Sex: Male

DRUGS (2)
  1. PREDNISONE [Suspect]
     Indication: IMMUNOSUPPRESSANT DRUG THERAPY
     Dosage: 5 mg
  2. TACROLIMUS [Suspect]
     Indication: IMMUNOSUPPRESSANT DRUG THERAPY

REACTIONS (13)
  - Aortic stenosis [Fatal]
  - Mycobacterial infection [Unknown]
  - Septic shock [Unknown]
  - Arteriovenous graft site infection [Unknown]
  - Erythema [Unknown]
  - Skin ulcer haemorrhage [Unknown]
  - Transplant failure [Unknown]
  - Pyrexia [Unknown]
  - Hypotension [Unknown]
  - Chills [Unknown]
  - Delirium [Unknown]
  - Clostridium difficile colitis [Unknown]
  - Syncope [Unknown]
